FAERS Safety Report 9527227 (Version 1)
Quarter: 2013Q3

REPORT INFORMATION
  Report Type: Spontaneous
  Country: US (occurrence: US)
  Receive Date: 20130917
  Receipt Date: 20130917
  Transmission Date: 20140515
  Serious: Yes (Hospitalization, Other)
  Sender: FDA-Public Use
  Company Number: US-AMGEN-USASP2013064674

PATIENT
  Age: 60 Year
  Sex: Female

DRUGS (1)
  1. ENBREL [Suspect]
     Indication: RHEUMATOID ARTHRITIS
     Dosage: 25 MG, QWK
     Route: 065
     Dates: start: 1998, end: 201002

REACTIONS (8)
  - Intracranial aneurysm [Recovered/Resolved]
  - Eye swelling [Recovered/Resolved]
  - Vascular graft [Recovered/Resolved]
  - Immunodeficiency [Recovered/Resolved]
  - Vascular graft complication [Recovered/Resolved]
  - Localised infection [Recovered/Resolved]
  - Infection [Recovered/Resolved]
  - Sinusitis [Recovered/Resolved]
